FAERS Safety Report 21178134 (Version 8)
Quarter: 2022Q4

REPORT INFORMATION
  Report Type: Spontaneous
  Country: US (occurrence: US)
  Receive Date: 20220805
  Receipt Date: 20221205
  Transmission Date: 20230113
  Serious: No
  Sender: FDA-Public Use
  Company Number: US-BRISTOL-MYERS SQUIBB COMPANY-2022-085904

PATIENT
  Age: 56 Year
  Sex: Female

DRUGS (2)
  1. ORENCIA [Suspect]
     Active Substance: ABATACEPT
     Indication: Rheumatoid arthritis
     Dosage: LOT EXPIRATION DATE: 03/31/2024
     Route: 058
     Dates: start: 20220426
  2. ORENCIA [Suspect]
     Active Substance: ABATACEPT
     Dosage: LOT EXPIRATION DATE: 03/31/2024
     Route: 058
     Dates: start: 20220426

REACTIONS (9)
  - Erythema [Unknown]
  - Pruritus [Unknown]
  - Blood blister [Unknown]
  - Skin exfoliation [Unknown]
  - Headache [Not Recovered/Not Resolved]
  - Hypertension [Not Recovered/Not Resolved]
  - Back pain [Unknown]
  - Burning sensation [Unknown]
  - Gait disturbance [Unknown]

NARRATIVE: CASE EVENT DATE: 20220701
